FAERS Safety Report 8451208-X (Version None)
Quarter: 2012Q2

REPORT INFORMATION
  Report Type: 
  Country: None (occurrence: None)
  Receive Date: 20120620
  Receipt Date: 20120227
  Transmission Date: 20120825
  Serious: No
  Sender: FDA-Public Use
  Company Number: US-VERTEX PHARMACEUTICALS INC.-AE-2011-005150

PATIENT
  Sex: Male
  Weight: 78.088 kg

DRUGS (3)
  1. PEGASYS [Concomitant]
     Indication: HEPATITIS C
     Route: 058
     Dates: start: 20111201
  2. INCIVEK [Suspect]
     Indication: HEPATITIS C
     Route: 048
     Dates: start: 20111201
  3. RIBAVIRIN [Concomitant]
     Indication: HEPATITIS C
     Route: 048
     Dates: start: 20111201

REACTIONS (12)
  - DECREASED APPETITE [None]
  - INSOMNIA [None]
  - DEPRESSED MOOD [None]
  - NIGHT SWEATS [None]
  - FATIGUE [None]
  - PRURITUS [None]
  - DRY SKIN [None]
  - EYE PAIN [None]
  - ARTHRALGIA [None]
  - RASH PRURITIC [None]
  - INCORRECT DOSE ADMINISTERED [None]
  - NAUSEA [None]
